FAERS Safety Report 16995996 (Version 1)
Quarter: 2019Q4

REPORT INFORMATION
  Report Type: Spontaneous
  Country: US (occurrence: US)
  Receive Date: 20191105
  Receipt Date: 20191105
  Transmission Date: 20200122
  Serious: No
  Sender: FDA-Public Use
  Company Number: US-PFIZER INC-2019474488

PATIENT
  Age: 59 Year
  Sex: Male

DRUGS (1)
  1. IBRANCE [Suspect]
     Active Substance: PALBOCICLIB
     Dosage: 125 MG, CYCLIC [DAILY FOR 21 DAYS, FOLLOWED BY A 7 DAYS BREAK]
     Route: 048
     Dates: start: 20190723

REACTIONS (2)
  - Hot flush [Unknown]
  - Fatigue [Unknown]
